FAERS Safety Report 8102712-5 (Version None)
Quarter: 2012Q1

REPORT INFORMATION
  Report Type: 
  Country: None (occurrence: None)
  Receive Date: 20120126
  Receipt Date: 20120119
  Transmission Date: 20120608
  Serious: Yes (Other)
  Sender: FDA-Public Use
  Company Number: 2012SP003732

PATIENT
  Sex: Female

DRUGS (2)
  1. RIBAVIRIN [Suspect]
     Indication: HEPATITIS C
     Dosage: ;UNK;UNK
     Dates: start: 20120106
  2. PEG-INTRON [Suspect]
     Indication: HEPATITIS C
     Dosage: ;UNK;UNK
     Dates: start: 20120106

REACTIONS (8)
  - VOMITING [None]
  - NAUSEA [None]
  - DEHYDRATION [None]
  - BLOOD PRESSURE INCREASED [None]
  - BLOOD GLUCOSE INCREASED [None]
  - ASTHENIA [None]
  - IMPAIRED WORK ABILITY [None]
  - DECREASED APPETITE [None]
